FAERS Safety Report 16514380 (Version 4)
Quarter: 2019Q3

REPORT INFORMATION
  Report Type: Report from Study
  Country: US (occurrence: US)
  Receive Date: 20190702
  Receipt Date: 20190816
  Transmission Date: 20191004
  Serious: Yes (Death, Life-Threatening, Hospitalization, Other)
  Sender: FDA-Public Use
  Company Number: US-BRISTOL-MYERS SQUIBB COMPANY-BMS-2019-062909

PATIENT
  Age: 51 Year
  Sex: Male
  Weight: 80.7 kg

DRUGS (11)
  1. XANAX [Concomitant]
     Active Substance: ALPRAZOLAM
     Indication: ANXIETY
     Dosage: 0.5 MILLIGRAM, BID
     Route: 065
     Dates: start: 20181228
  2. PREDNISONE. [Concomitant]
     Active Substance: PREDNISONE
     Indication: LIVER FUNCTION TEST INCREASED
     Dosage: 20 MILLIGRAM, QID
     Route: 065
     Dates: start: 20190530, end: 20190606
  3. VOROLANIB [Suspect]
     Active Substance: VOROLANIB
     Indication: NEOPLASM
     Dosage: 200 MILLIGRAM, QD
     Route: 048
     Dates: start: 20190502
  4. EMLA [LIDOCAINE;PRILOCAINE] [Concomitant]
     Indication: PRODUCT USED FOR UNKNOWN INDICATION
     Dosage: 2.5 PERCENT, QD
     Route: 065
     Dates: start: 20181224
  5. PREDNISONE. [Concomitant]
     Active Substance: PREDNISONE
     Indication: PRODUCT USED FOR UNKNOWN INDICATION
     Dosage: 20 MILLIGRAM, QD
     Route: 065
     Dates: start: 20190606
  6. NEXIUM [Concomitant]
     Active Substance: ESOMEPRAZOLE MAGNESIUM
     Indication: LIVER FUNCTION TEST INCREASED
     Dosage: 20 MILLIGRAM, QD
     Route: 065
     Dates: start: 20190530
  7. COMPAZINE [Concomitant]
     Active Substance: PROCHLORPERAZINE MALEATE
     Indication: NAUSEA
     Dosage: UNK UNK, PRN
     Route: 065
     Dates: start: 20181224
  8. NIVOLUMAB [Suspect]
     Active Substance: NIVOLUMAB
     Indication: NEOPLASM
     Dosage: 240 MILLIGRAM, Q2WK
     Route: 042
     Dates: start: 20190502
  9. NEURONTIN [Concomitant]
     Active Substance: GABAPENTIN
     Indication: PAIN
     Dosage: 300 MILLIGRAM, TID
     Route: 065
     Dates: start: 20190117
  10. BACTRIM [Concomitant]
     Active Substance: SULFAMETHOXAZOLE\TRIMETHOPRIM
     Indication: LIVER FUNCTION TEST INCREASED
     Dosage: UNK MILLIGRAM, Q3WK
     Route: 065
     Dates: start: 20180530
  11. EFFEXOR [Concomitant]
     Active Substance: VENLAFAXINE HYDROCHLORIDE
     Indication: ANXIETY
     Dosage: 150 MILLIGRAM, QD
     Route: 065
     Dates: start: 20190530

REACTIONS (4)
  - Pericardial effusion [Not Recovered/Not Resolved]
  - Pleural effusion [Not Recovered/Not Resolved]
  - Haemorrhagic transformation stroke [Not Recovered/Not Resolved]
  - Sudden death [Fatal]

NARRATIVE: CASE EVENT DATE: 20190622
